FAERS Safety Report 25620095 (Version 1)
Quarter: 2025Q3

REPORT INFORMATION
  Report Type: Spontaneous
  Country: EU (occurrence: EU)
  Receive Date: 20250730
  Receipt Date: 20250730
  Transmission Date: 20251021
  Serious: Yes (Death)
  Sender: ACCORD
  Company Number: None

PATIENT
  Age: 87 Year
  Sex: Male

DRUGS (14)
  1. CLOZAPINE [Suspect]
     Active Substance: CLOZAPINE
     Indication: Antipsychotic therapy
     Dosage: STRENGTH: 25 MG, SCORED TABLET, 0.25 TABLETS AT 8H AND 0.25 TABLETS AT 18H
     Dates: start: 20250202, end: 20250425
  2. METHOTREXATE SODIUM [Suspect]
     Active Substance: METHOTREXATE SODIUM
     Indication: Polymyalgia rheumatica
     Dosage: STRENGTH: 10 MG
     Dates: start: 20250317, end: 20250425
  3. BISOPROLOL [Concomitant]
     Active Substance: BISOPROLOL
  4. ATORVASTATIN [Concomitant]
     Active Substance: ATORVASTATIN
  5. KARDEGIC [Concomitant]
     Active Substance: ASPIRIN DL-LYSINE
  6. PREDNISONE [Concomitant]
     Active Substance: PREDNISONE
  7. OXAZEPAM [Concomitant]
     Active Substance: OXAZEPAM
  8. FOLIC ACID [Concomitant]
     Active Substance: FOLIC ACID
  9. SILODOSIN [Concomitant]
     Active Substance: SILODOSIN
  10. EFFEXOR [Concomitant]
     Active Substance: VENLAFAXINE HYDROCHLORIDE
  11. POLYETHYLENE GLYCOL 4000 [Concomitant]
     Active Substance: POLYETHYLENE GLYCOL 4000
  12. DOLIPRANE [Concomitant]
     Active Substance: ACETAMINOPHEN
  13. ESOMEPRAZOLE [Concomitant]
     Active Substance: ESOMEPRAZOLE
  14. FLECTOR [Concomitant]
     Active Substance: DICLOFENAC EPOLAMINE

REACTIONS (3)
  - Bone marrow failure [Fatal]
  - Mucosal inflammation [Fatal]
  - Product prescribing error [Fatal]

NARRATIVE: CASE EVENT DATE: 20250317
